FAERS Safety Report 4264872-6 (Version None)
Quarter: 2004Q1

REPORT INFORMATION
  Report Type: 
  Country: None (occurrence: None)
  Receive Date: 20040105
  Receipt Date: 20031224
  Transmission Date: 20041129
  Serious: Yes (Death)
  Sender: FDA-Public Use
  Company Number: OXCD20030018

PATIENT
  Age: 23 Year
  Sex: Male

DRUGS (3)
  1. OXYCODONE HCL [Suspect]
     Dates: start: 20020101, end: 20020101
  2. ALPRAZOLAM [Suspect]
     Dates: start: 20020101, end: 20020101
  3. MARIJUANA [Suspect]
     Dates: start: 20020101, end: 20020101

REACTIONS (3)
  - COMA [None]
  - OVERDOSE [None]
  - PULMONARY OEDEMA [None]
